FAERS Safety Report 19284323 (Version 1)
Quarter: 2021Q2

REPORT INFORMATION
  Report Type: Spontaneous
  Country: CA (occurrence: CA)
  Receive Date: 20210521
  Receipt Date: 20210521
  Transmission Date: 20210717
  Serious: Yes (Hospitalization)
  Sender: FDA-Public Use
  Company Number: CA-TAKEDA-2021TUS031776

PATIENT
  Age: 9 Year
  Sex: Female

DRUGS (1)
  1. PENTASA [Suspect]
     Active Substance: MESALAMINE
     Indication: INFLAMMATORY BOWEL DISEASE
     Dosage: 2500 MILLIGRAM, QD
     Route: 048

REACTIONS (3)
  - Abdominal pain [Recovered/Resolved]
  - Pancreatic disorder [Recovered/Resolved]
  - Lipase increased [Recovered/Resolved]
